FAERS Safety Report 10180432 (Version 1)
Quarter: 2014Q2

REPORT INFORMATION
  Report Type: Spontaneous
  Country: US (occurrence: US)
  Receive Date: 20140519
  Receipt Date: 20140519
  Transmission Date: 20141212
  Serious: No
  Sender: FDA-Public Use
  Company Number: US-AMGEN INC.-USASP2013090431

PATIENT
  Age: 83 Year
  Sex: Female

DRUGS (6)
  1. PROLIA [Suspect]
     Indication: OSTEOPOROSIS POSTMENOPAUSAL
     Dosage: UNK
     Route: 065
     Dates: start: 20131205
  2. LOMOTIL                            /00034001/ [Concomitant]
     Indication: CROHN^S DISEASE
  3. DIGESTIVE ADVANTAGE                /06771401/ [Concomitant]
     Indication: CROHN^S DISEASE
  4. CALCIUM [Concomitant]
  5. VITAMIN D                          /00107901/ [Concomitant]
  6. MAGNESIUM [Concomitant]

REACTIONS (3)
  - Muscle spasms [Unknown]
  - Pain [Unknown]
  - Crohn^s disease [Unknown]
